FAERS Safety Report 7198767-5 (Version None)
Quarter: 2010Q4

REPORT INFORMATION
  Report Type: 
  Country: None (occurrence: None)
  Receive Date: 20101227
  Receipt Date: 20100507
  Transmission Date: 20110411
  Serious: No
  Sender: FDA-Public Use
  Company Number: US-ABBOTT-10P-163-0643634-00

PATIENT
  Sex: Male

DRUGS (2)
  1. LUPRON DEPOT [Suspect]
     Indication: PROSTATE CANCER
     Route: 030
     Dates: start: 20090601, end: 20091101
  2. LUPRON DEPOT [Suspect]
     Route: 030
     Dates: start: 20100301

REACTIONS (3)
  - BLOOD TESTOSTERONE INCREASED [None]
  - FUNGAL INFECTION [None]
  - PHIMOSIS [None]
